FAERS Safety Report 8071389 (Version 2)
Quarter: 2015Q4

REPORT INFORMATION
  Report Type: Other
  Country: HU (occurrence: HU)
  Receive Date: 20110805
  Receipt Date: 20151026
  Transmission Date: 20160305
  Serious: Yes (Death, Life-Threatening, Hospitalization, Other)
  Sender: FDA-Public Use
  Company Number: HU-ACTELION-A-CH2011-52077

PATIENT
  Age: 7 Year
  Sex: Female
  Weight: 11 kg

DRUGS (1)
  1. ZAVESCA [Suspect]
     Active Substance: MIGLUSTAT
     Indication: NIEMANN-PICK DISEASE
     Dosage: 100 MG, BID
     Route: 048
     Dates: start: 20100917, end: 20101011

REACTIONS (8)
  - Fluid imbalance [Recovered/Resolved]
  - Fatigue [Recovered/Resolved]
  - Diarrhoea [Recovered/Resolved]
  - Weight decreased [Not Recovered/Not Resolved]
  - Electrolyte imbalance [Recovered/Resolved]
  - Disease progression [Fatal]
  - Niemann-Pick disease [Fatal]
  - Dehydration [Recovered/Resolved]

NARRATIVE: CASE EVENT DATE: 20100925
